FAERS Safety Report 24184813 (Version 1)
Quarter: 2024Q3

REPORT INFORMATION
  Report Type: Spontaneous
  Country: CN (occurrence: CN)
  Receive Date: 20240807
  Receipt Date: 20240807
  Transmission Date: 20241016
  Serious: Yes (Other)
  Sender: AMGEN
  Company Number: CN-AMGEN-CHNSP2024155068

PATIENT

DRUGS (2)
  1. REPATHA [Suspect]
     Active Substance: EVOLOCUMAB
     Indication: Coronary artery disease
     Dosage: 140 MILLIGRAM, Q2WK
     Route: 058
     Dates: start: 2023
  2. ROSUVASTATIN [Concomitant]
     Active Substance: ROSUVASTATIN\ROSUVASTATIN CALCIUM
     Indication: Coronary artery disease
     Dosage: 10 MILLIGRAM
     Route: 048

REACTIONS (13)
  - Arrhythmia [Unknown]
  - Myocardial infarction [Unknown]
  - Angina pectoris [Unknown]
  - Blood triglycerides decreased [Unknown]
  - Blood cholesterol decreased [Unknown]
  - Low density lipoprotein decreased [Unknown]
  - Blood lactate dehydrogenase decreased [Unknown]
  - Troponin I decreased [Unknown]
  - Blood creatine phosphokinase decreased [Unknown]
  - Chemokine decreased [Unknown]
  - Alpha tumour necrosis factor decreased [Unknown]
  - Laboratory test abnormal [Unknown]
  - Interleukin level decreased [Unknown]
